FAERS Safety Report 4912241-5 (Version None)
Quarter: 2006Q1

REPORT INFORMATION
  Report Type: 
  Country: None (occurrence: None)
  Receive Date: 20060215
  Receipt Date: 20051107
  Transmission Date: 20060701
  Serious: No
  Sender: FDA-Public Use
  Company Number: US-GLAXOSMITHKLINE-A0581259A

PATIENT
  Age: 35 Year
  Sex: Male

DRUGS (2)
  1. VALTREX [Suspect]
     Dosage: 1000MG PER DAY
     Route: 048
     Dates: start: 20050915
  2. CODEINE [Concomitant]

REACTIONS (1)
  - DRUG INEFFECTIVE [None]
